FAERS Safety Report 12737143 (Version 1)
Quarter: 2016Q3

REPORT INFORMATION
  Report Type: Spontaneous
  Country: CH (occurrence: CH)
  Receive Date: 20160913
  Receipt Date: 20160913
  Transmission Date: 20161109
  Serious: Yes (Hospitalization)
  Sender: FDA-Public Use
  Company Number: CH-SA-2016SA164812

PATIENT
  Age: 75 Year
  Sex: Male
  Weight: 75 kg

DRUGS (10)
  1. XARELTO [Interacting]
     Active Substance: RIVAROXABAN
     Indication: ATRIAL FIBRILLATION
     Route: 048
     Dates: end: 20160823
  2. ASPIRINE [Suspect]
     Active Substance: ASPIRIN
     Indication: CORONARY ARTERIAL STENT INSERTION
     Route: 041
     Dates: start: 20160820, end: 20160820
  3. METOPROLOL. [Concomitant]
     Active Substance: METOPROLOL
     Route: 048
     Dates: start: 20160821, end: 20160823
  4. PLAVIX [Suspect]
     Active Substance: CLOPIDOGREL BISULFATE
     Indication: CORONARY ARTERIAL STENT INSERTION
     Route: 048
     Dates: start: 20160820, end: 20160820
  5. PLAVIX [Suspect]
     Active Substance: CLOPIDOGREL BISULFATE
     Indication: CORONARY ARTERIAL STENT INSERTION
     Route: 048
     Dates: start: 20160821, end: 20160823
  6. TORASEMIDE [Concomitant]
     Active Substance: TORSEMIDE
     Route: 048
     Dates: end: 20160823
  7. PANTOZOL [Concomitant]
     Active Substance: PANTOPRAZOLE SODIUM
     Route: 048
     Dates: start: 20160822, end: 20160823
  8. ENTRESTO [Concomitant]
     Active Substance: SACUBITRIL\VALSARTAN
     Route: 048
     Dates: start: 20160719, end: 20160820
  9. ATORVASTATIN [Concomitant]
     Active Substance: ATORVASTATIN
     Route: 048
     Dates: start: 20160820, end: 20160823
  10. ASPIRINE [Suspect]
     Active Substance: ASPIRIN
     Indication: CORONARY ARTERIAL STENT INSERTION
     Route: 048
     Dates: start: 20160821, end: 20160823

REACTIONS (3)
  - Cerebral haemorrhage [Not Recovered/Not Resolved]
  - Potentiating drug interaction [Recovered/Resolved]
  - Hemiparesis [Not Recovered/Not Resolved]

NARRATIVE: CASE EVENT DATE: 20160820
